FAERS Safety Report 4330148-1 (Version None)
Quarter: 2004Q2

REPORT INFORMATION
  Report Type: 
  Country: None (occurrence: None)
  Receive Date: 20040402
  Receipt Date: 20040209
  Transmission Date: 20050107
  Serious: Yes (Hospitalization)
  Sender: FDA-Public Use
  Company Number: PHFR2004GB00992

PATIENT
  Age: 64 Year
  Sex: Female

DRUGS (3)
  1. CLOZARIL [Suspect]
     Indication: SCHIZOPHRENIA
     Dosage: 450MG/DAY
     Route: 048
     Dates: start: 20001017, end: 20040217
  2. THYROXINE [Concomitant]
     Dosage: 100UG/DAY
     Route: 048
  3. ASPIRIN [Concomitant]
     Dosage: 75MG/DAY
     Route: 048

REACTIONS (10)
  - BREAST CANCER [None]
  - HAEMOGLOBIN DECREASED [None]
  - INVESTIGATION ABNORMAL [None]
  - LEUKOERYTHROBLASTIC ANAEMIA [None]
  - LYMPHOCYTE COUNT INCREASED [None]
  - MALAISE [None]
  - NUCLEATED RED CELLS [None]
  - PLATELET COUNT DECREASED [None]
  - RED BLOOD CELL SPHEROCYTES PRESENT [None]
  - WHITE BLOOD CELL COUNT INCREASED [None]
